FAERS Safety Report 4540595-0 (Version None)
Quarter: 2004Q4

REPORT INFORMATION
  Report Type: 
  Country: None (occurrence: None)
  Receive Date: 20041229
  Receipt Date: 20041215
  Transmission Date: 20050328
  Serious: Yes (Death, Other)
  Sender: FDA-Public Use
  Company Number: 200413903JP

PATIENT
  Age: 45 Year
  Sex: Female
  Weight: 50 kg

DRUGS (2)
  1. TAXOTERE [Suspect]
     Indication: OVARIAN CANCER
     Route: 041
     Dates: start: 20040818, end: 20040818
  2. CISPLATIN [Concomitant]
     Indication: OVARIAN CANCER
     Route: 041
     Dates: start: 20040817, end: 20040819

REACTIONS (3)
  - ANURIA [None]
  - RENAL FAILURE [None]
  - VOMITING [None]
